FAERS Safety Report 13452822 (Version 2)
Quarter: 2017Q2

REPORT INFORMATION
  Report Type: Spontaneous
  Country: JP (occurrence: JP)
  Receive Date: 20170418
  Receipt Date: 20170516
  Transmission Date: 20170830
  Serious: Yes (Death, Hospitalization, Other)
  Sender: FDA-Public Use
  Company Number: JP-GLAXOSMITHKLINE-JP2017JPN010652

PATIENT
  Age: 66 Year
  Sex: Male

DRUGS (5)
  1. VOLIBRIS [Suspect]
     Active Substance: AMBRISENTAN
     Indication: PULMONARY ARTERIAL HYPERTENSION
     Dosage: 10 MG, QD
     Route: 048
     Dates: end: 20160104
  2. BERASUS LA [Concomitant]
     Dosage: 120 ?G, BID
     Dates: end: 20170105
  3. SAMSCA [Concomitant]
     Active Substance: TOLVAPTAN
     Dosage: 15 MG, QD
     Dates: end: 20170105
  4. ADCIRCA [Concomitant]
     Active Substance: TADALAFIL
     Dosage: 40 MG, QD
     Dates: end: 20170105
  5. FLOLAN [Suspect]
     Active Substance: EPOPROSTENOL SODIUM
     Indication: PULMONARY ARTERIAL HYPERTENSION
     Dosage: 1 NG/KG/MIN, 0.8 ML/H
     Route: 042
     Dates: start: 20160104, end: 20160105

REACTIONS (6)
  - Pulmonary hypertension [Fatal]
  - Right ventricular failure [Fatal]
  - Cardiac arrest [Fatal]
  - Hypercapnia [Fatal]
  - Hypoxia [Fatal]
  - Pneumonia [Fatal]

NARRATIVE: CASE EVENT DATE: 20160105
